FAERS Safety Report 21985109 (Version 2)
Quarter: 2023Q2

REPORT INFORMATION
  Report Type: Report from Study
  Country: MX (occurrence: MX)
  Receive Date: 20230213
  Receipt Date: 20230419
  Transmission Date: 20230721
  Serious: No
  Sender: FDA-Public Use
  Company Number: MX-AstraZeneca-2023A033341

PATIENT
  Age: 103 Day
  Sex: Female
  Weight: 4.1 kg

DRUGS (3)
  1. SYNAGIS [Suspect]
     Active Substance: PALIVIZUMAB
     Indication: Premature baby
     Dosage: 0.3 ML MONTHLY
     Route: 030
     Dates: start: 20230103, end: 20230103
  2. SYNAGIS [Suspect]
     Active Substance: PALIVIZUMAB
     Dosage: 0.7 ML MONTHLY
     Route: 030
     Dates: start: 20230202, end: 20230202
  3. SYNAGIS [Suspect]
     Active Substance: PALIVIZUMAB
     Route: 030
     Dates: start: 20230412, end: 20230412

REACTIONS (3)
  - Restlessness [Recovered/Resolved]
  - Crying [Recovered/Resolved]
  - Incorrect dose administered [Recovered/Resolved]

NARRATIVE: CASE EVENT DATE: 20230202
